FAERS Safety Report 24767043 (Version 1)
Quarter: 2024Q4

REPORT INFORMATION
  Report Type: Spontaneous
  Country: US (occurrence: None)
  Receive Date: 20241223
  Receipt Date: 20241223
  Transmission Date: 20250114
  Serious: Yes (Hospitalization)
  Sender: Public
  Company Number: None

PATIENT
  Age: 57 Year
  Sex: Male

DRUGS (5)
  1. ONUREG [Suspect]
     Active Substance: AZACITIDINE
     Dosage: FREQUENCY : DAILY;?
     Dates: start: 20241113
  2. PREDNISONE [Concomitant]
     Active Substance: PREDNISONE
  3. SEPTRA REG STRENGTH [Concomitant]
  4. SIMVASTATIN [Concomitant]
     Active Substance: SIMVASTATIN
  5. TACROLIMUS [Concomitant]
     Active Substance: TACROLIMUS

REACTIONS (6)
  - Rash [None]
  - Fatigue [None]
  - Asthenia [None]
  - Hypotension [None]
  - Decreased appetite [None]
  - Adverse drug reaction [None]

NARRATIVE: CASE EVENT DATE: 20241212
